FAERS Safety Report 24641022 (Version 1)
Quarter: 2024Q4

REPORT INFORMATION
  Report Type: Report from Study
  Country: CA (occurrence: CA)
  Receive Date: 20241120
  Receipt Date: 20241120
  Transmission Date: 20250114
  Serious: Yes (Hospitalization, Other)
  Sender: CHIESI
  Company Number: CA-CHIESI-2024CHF06226

PATIENT
  Age: 43 Year
  Sex: Female
  Weight: 66.2 kg

DRUGS (2)
  1. DEFERIPRONE [Suspect]
     Active Substance: DEFERIPRONE
     Indication: Pyruvate kinase deficiency anaemia
     Dosage: UNK, TID
     Route: 048
     Dates: start: 20141121
  2. DEFERIPRONE [Suspect]
     Active Substance: DEFERIPRONE
     Indication: Glucose-6-phosphate dehydrogenase deficiency

REACTIONS (4)
  - Jugular vein thrombosis [Unknown]
  - Pneumonia [Unknown]
  - Sinusitis [Unknown]
  - Ill-defined disorder [Recovered/Resolved]

NARRATIVE: CASE EVENT DATE: 20240913
